FAERS Safety Report 21310319 (Version 1)
Quarter: 2022Q3

REPORT INFORMATION
  Report Type: Spontaneous
  Country: US (occurrence: US)
  Receive Date: 20220909
  Receipt Date: 20220909
  Transmission Date: 20221026
  Serious: No
  Sender: FDA-Public Use
  Company Number: US-BECTON DICKINSON-US-BD-21-000239

PATIENT

DRUGS (1)
  1. CHLORAPREP [Suspect]
     Active Substance: CHLORHEXIDINE GLUCONATE\ISOPROPYL ALCOHOL
     Indication: Infection prophylaxis
     Dosage: 1 APPLICATOR
     Route: 061
     Dates: start: 20210815, end: 20210815

REACTIONS (3)
  - Skin abrasion [Recovering/Resolving]
  - Product package associated injury [Unknown]
  - Device malfunction [Unknown]

NARRATIVE: CASE EVENT DATE: 20210815
